FAERS Safety Report 6317028-7 (Version None)
Quarter: 2009Q3

REPORT INFORMATION
  Report Type: 
  Country: None (occurrence: None)
  Receive Date: 20090820
  Receipt Date: 20090814
  Transmission Date: 20100115
  Serious: Yes (Death)
  Sender: FDA-Public Use
  Company Number: US-CELGENEUS-163-20785-09080749

PATIENT
  Sex: Male

DRUGS (3)
  1. THALOMID [Suspect]
     Indication: MULTIPLE MYELOMA
     Route: 048
     Dates: start: 20081201, end: 20090101
  2. THALOMID [Suspect]
     Route: 048
     Dates: start: 20070401
  3. THALOMID [Suspect]
     Route: 048
     Dates: start: 20070501

REACTIONS (2)
  - TRANSFUSION REACTION [None]
  - TRAUMATIC LUNG INJURY [None]
